FAERS Safety Report 20707463 (Version 1)
Quarter: 2022Q2

REPORT INFORMATION
  Report Type: Other
  Country: None (occurrence: GB)
  Receive Date: 20220413
  Receipt Date: 20220413
  Transmission Date: 20220721
  Serious: Yes (Death, Other)
  Sender: FDA-Public Use
  Company Number: GB-Air Products and Chemicals, Inc. -2127737

PATIENT
  Age: 76 Year
  Sex: Female

DRUGS (1)
  1. OXYGEN [Suspect]
     Active Substance: OXYGEN

REACTIONS (4)
  - Death [None]
  - Hypercapnia [None]
  - Agonal respiration [None]
  - Unresponsive to stimuli [None]
